FAERS Safety Report 8919020 (Version 3)
Quarter: 2013Q2

REPORT INFORMATION
  Report Type: Spontaneous
  Country: JP (occurrence: JP)
  Receive Date: 20121121
  Receipt Date: 20130528
  Transmission Date: 20140414
  Serious: Yes (Other)
  Sender: FDA-Public Use
  Company Number: JP-ASTELLAS-2012JP009076

PATIENT
  Age: 91 Year
  Sex: Female

DRUGS (8)
  1. VESICARE [Suspect]
     Dosage: 5 MG, UNKNOWN/D
     Route: 048
     Dates: end: 20121004
  2. CALFINA [Concomitant]
     Dosage: 1 UG, UID/QD
     Route: 048
     Dates: end: 20121004
  3. BAYASPIRIN [Concomitant]
     Dosage: 100 MG, UID/QD
     Route: 048
  4. AMLODIPINE                         /00972402/ [Concomitant]
     Dosage: 2.5 MG, UID/QD
     Route: 048
  5. TANATRIL [Concomitant]
     Dosage: 5 MG, UID/QD
     Route: 048
     Dates: end: 20121004
  6. ASPARA-CA [Concomitant]
     Dosage: 800 MG, UNKNOWN/D
     Route: 048
  7. MOBIC [Concomitant]
     Dosage: 10 MG, UID/QD
     Route: 048
     Dates: end: 20121004
  8. ALFAROL [Concomitant]
     Dosage: UNK
     Route: 048

REACTIONS (4)
  - Blood creatine phosphokinase increased [Recovered/Resolved]
  - Myalgia [Recovered/Resolved]
  - Haematuria [Recovered/Resolved]
  - Urine odour abnormal [Recovered/Resolved]
